FAERS Safety Report 7387390-5 (Version None)
Quarter: 2011Q1

REPORT INFORMATION
  Report Type: 
  Country: None (occurrence: None)
  Receive Date: 20110331
  Receipt Date: 20110328
  Transmission Date: 20110831
  Serious: Yes (Death)
  Sender: FDA-Public Use
  Company Number: PHHY2011US17473

PATIENT
  Sex: Male

DRUGS (7)
  1. ALOXI [Concomitant]
     Dosage: 2.5 G, QW3
  2. ZOMETA [Suspect]
     Indication: METASTASES TO BONE
     Dosage: 4 MG, QW4
     Route: 042
     Dates: start: 20101013, end: 20101227
  3. NEULASTA [Concomitant]
     Dosage: 6 G, QW3
  4. TAXOTERE [Concomitant]
     Indication: PROSTATE CANCER
     Dosage: 100 G, QW3
     Route: 042
  5. RECADEX [Concomitant]
  6. CASODEX [Concomitant]
  7. PREDNISONE [Concomitant]

REACTIONS (1)
  - PROSTATE CANCER [None]
